FAERS Safety Report 19165136 (Version 3)
Quarter: 2022Q1

REPORT INFORMATION
  Report Type: Report from Study
  Country: US (occurrence: None)
  Receive Date: 20210421
  Receipt Date: 20220211
  Transmission Date: 20220424
  Serious: Yes (Hospitalization, Other)
  Sender: FDA-Public Use
  Company Number: US-MERCK HEALTHCARE KGAA-9233664

PATIENT
  Age: 64 Year
  Sex: Female
  Weight: 131 kg

DRUGS (19)
  1. AVELUMAB [Suspect]
     Active Substance: AVELUMAB
     Indication: Refractory cancer
     Route: 042
     Dates: start: 20210312
  2. AVELUMAB [Suspect]
     Active Substance: AVELUMAB
     Route: 042
     Dates: start: 20210324
  3. AUTOLOGOUS NATURAL KILLER CELLS [Suspect]
     Active Substance: AUTOLOGOUS NATURAL KILLER CELLS
     Indication: Refractory cancer
     Dosage: 2.0 X 10*9 CELLS
     Route: 042
     Dates: start: 20210324
  4. ADVAIR HFA [Concomitant]
     Active Substance: FLUTICASONE PROPIONATE\SALMETEROL XINAFOATE
     Indication: Product used for unknown indication
     Dates: start: 20150101
  5. NASONEX [Concomitant]
     Active Substance: MOMETASONE FUROATE
     Indication: Product used for unknown indication
     Dates: start: 20180222
  6. PATANOL [Concomitant]
     Active Substance: OLOPATADINE HYDROCHLORIDE
     Indication: Product used for unknown indication
     Dates: start: 2016
  7. ESCITALOPRAM [Concomitant]
     Active Substance: ESCITALOPRAM OXALATE
     Indication: Product used for unknown indication
     Dates: start: 2017
  8. SYNTHROID [Concomitant]
     Active Substance: LEVOTHYROXINE SODIUM
     Indication: Product used for unknown indication
     Dates: start: 202003
  9. ZYRTEC [Concomitant]
     Active Substance: CETIRIZINE HYDROCHLORIDE
     Indication: Product used for unknown indication
     Dates: start: 202009, end: 20210225
  10. DIVIGEL [Concomitant]
     Active Substance: ESTRADIOL
     Indication: Product used for unknown indication
     Dates: start: 20090101
  11. PANTOPRAZOLE [Concomitant]
     Active Substance: PANTOPRAZOLE
     Indication: Gastrooesophageal reflux disease
  12. PANTOPRAZOLE [Concomitant]
     Active Substance: PANTOPRAZOLE
  13. XARELTO [Concomitant]
     Active Substance: RIVAROXABAN
     Indication: Deep vein thrombosis
  14. SIMETHICONE (DIMETHICONE) [Concomitant]
     Active Substance: DIMETHICONE
     Indication: Gastrooesophageal reflux disease
  15. SODIUM BICARBONATE [Concomitant]
     Active Substance: SODIUM BICARBONATE
     Indication: Gastrooesophageal reflux disease
  16. LEVOTHYROXINE [Concomitant]
     Active Substance: LEVOTHYROXINE
     Indication: Hypothyroidism
  17. LEXAPRO [Concomitant]
     Active Substance: ESCITALOPRAM OXALATE
     Indication: Anxiety
  18. LORAZEPAM [Concomitant]
     Active Substance: LORAZEPAM
     Indication: Anxiety
  19. SODIUM LACTATE [Concomitant]
     Active Substance: SODIUM LACTATE
     Indication: Hyponatraemia
     Route: 040

REACTIONS (1)
  - Acute kidney injury [Recovered/Resolved]

NARRATIVE: CASE EVENT DATE: 20210325
